FAERS Safety Report 18086030 (Version 2)
Quarter: 2020Q3

REPORT INFORMATION
  Report Type: Spontaneous
  Country: PT (occurrence: PT)
  Receive Date: 20200729
  Receipt Date: 20200807
  Transmission Date: 20201103
  Serious: Yes (Hospitalization)
  Sender: FDA-Public Use
  Company Number: PT-ACCORD-193101

PATIENT
  Age: 55 Year
  Sex: Male
  Weight: 70 kg

DRUGS (4)
  1. CAPECITABINE ACCORD [Suspect]
     Active Substance: CAPECITABINE
     Indication: ADENOCARCINOMA OF COLON
     Dosage: 3 TABLET 500 MG +1 TABLET 150 MG?PA+3 TABLET OF 500 MG+1 TABLET OF 150 MG DINNER FOR 14 DAYS
     Route: 048
     Dates: start: 20200603, end: 20200617
  2. OXALIPLATIN. [Concomitant]
     Active Substance: OXALIPLATIN
  3. CAPECITABINE ACCORD [Suspect]
     Active Substance: CAPECITABINE
     Indication: ADENOCARCINOMA OF COLON
     Dosage: 3 TABLET 500 MG, 1 TABLET 150 MG? PA +3 TABLET OF 500 MG+1 TABLET OF 150 MG DINNER FOR 14 DAYS
     Route: 048
     Dates: start: 20200430
  4. CAPECITABINE ACCORD [Suspect]
     Active Substance: CAPECITABINE
     Indication: ADENOCARCINOMA OF COLON
     Dosage: 3 TABLET 500 MG, 1 TABLET 150 MG? PA +3 TABLET OF 500 MG+1 TABLET OF 150 MG DINNER FOR 14 DAYS
     Route: 048
     Dates: start: 20200603, end: 20200617

REACTIONS (2)
  - Gastrointestinal inflammation [Recovered/Resolved]
  - Enterocolitis [Recovered/Resolved]

NARRATIVE: CASE EVENT DATE: 20200516
